FAERS Safety Report 6826713-X (Version None)
Quarter: 2010Q3

REPORT INFORMATION
  Report Type: 
  Country: None (occurrence: None)
  Receive Date: 20100709
  Receipt Date: 20100630
  Transmission Date: 20110219
  Serious: Yes (Death)
  Sender: FDA-Public Use
  Company Number: GXKR2010NL07265

PATIENT

DRUGS (12)
  1. METRONIDAZOLE [Suspect]
     Indication: CORYNEBACTERIUM INFECTION
     Dosage: 500 MG, QID (A TOTAL CUMULATIVE DOSE OF 132 G)
     Route: 042
  2. METRONIDAZOLE [Suspect]
     Indication: BACTEROIDES TEST POSITIVE
     Dosage: 1500 MG, QD (OVER 90 MINUTES)
     Route: 042
  3. SULFAMETHOXAZOLE AND TRIMETHOPRIM [Concomitant]
     Indication: STENOTROPHOMONAS INFECTION
     Dosage: 480 MG, BID
     Route: 048
  4. TEICOPLANIN [Concomitant]
     Dosage: 400 MG, UNK
     Route: 065
  5. BACLOFEN [Concomitant]
     Indication: PAIN
     Dosage: 25 MG, TID
     Route: 065
  6. RIFAMPICIN [Concomitant]
     Dosage: 450 MG, BID
     Route: 065
  7. VANCOMYCIN [Concomitant]
     Indication: WOUND INFECTION
     Dosage: 1000 MG, BID
     Route: 065
  8. OMEPRAZOLE [Concomitant]
     Indication: DYSPEPSIA
     Dosage: 20 MG, QD
     Route: 065
  9. SODIUM PHOSPHATE DIBASIC [Concomitant]
     Dosage: 1500 MG PER 100 ML
     Route: 042
  10. SODIUM CHLORIDE [Concomitant]
     Dosage: 7400 MG PER 1000 ML
     Route: 042
  11. CITRIC ACID [Concomitant]
     Dosage: 420 MG PER 1000 ML
     Route: 042
  12. WATER FOR INJECTION [Concomitant]
     Dosage: 1000 ML PER 1000 ML
     Route: 042

REACTIONS (7)
  - COMA [None]
  - CONVULSION [None]
  - DYSARTHRIA [None]
  - ENCEPHALOPATHY [None]
  - HYPOVENTILATION [None]
  - MECHANICAL VENTILATION [None]
  - SOMNOLENCE [None]
